FAERS Safety Report 16529482 (Version 1)
Quarter: 2019Q3

REPORT INFORMATION
  Report Type: Spontaneous
  Country: US (occurrence: US)
  Receive Date: 20190704
  Receipt Date: 20190704
  Transmission Date: 20191004
  Serious: Yes (Hospitalization)
  Sender: FDA-Public Use
  Company Number: US-GLAXOSMITHKLINE-US2019GSK116248

PATIENT
  Age: 52 Year
  Sex: Female

DRUGS (14)
  1. ROTIGOTINE [Suspect]
     Active Substance: ROTIGOTINE
     Indication: ANXIETY
  2. LEVODOPA [Suspect]
     Active Substance: LEVODOPA
     Dosage: UNK
  3. CARBIDOPA AND LEVODOPA [Suspect]
     Active Substance: CARBIDOPA\LEVODOPA
     Dosage: 4 DAILY
  4. ROTIGOTINE [Suspect]
     Active Substance: ROTIGOTINE
     Indication: PARKINSONISM
     Dosage: 8 MG
  5. CLONAZEPAM. [Suspect]
     Active Substance: CLONAZEPAM
     Indication: PRODUCT USED FOR UNKNOWN INDICATION
     Dosage: 1 MG AT BEDTIME
  6. ROPINIROLE. [Suspect]
     Active Substance: ROPINIROLE
     Dosage: 16 MG
  7. LEVODOPA [Suspect]
     Active Substance: LEVODOPA
     Indication: PARKINSONISM
     Dosage: 800 MG PER DAY
  8. ESCITALOPRAM [Concomitant]
     Active Substance: ESCITALOPRAM OXALATE
     Indication: ANXIETY
     Dosage: UNK
  9. ROPINIROLE. [Suspect]
     Active Substance: ROPINIROLE
     Indication: PARKINSONISM
     Dosage: 8 MG
  10. QUETIAPINE. [Suspect]
     Active Substance: QUETIAPINE
     Indication: PSYCHOTIC DISORDER
     Dosage: 150 MG PER DAY
  11. LEVODOPA [Suspect]
     Active Substance: LEVODOPA
     Dosage: 500 MG PER DAY
  12. ROTIGOTINE [Suspect]
     Active Substance: ROTIGOTINE
     Indication: PANIC REACTION
  13. CARBIDOPA AND LEVODOPA [Suspect]
     Active Substance: CARBIDOPA\LEVODOPA
     Indication: PARKINSONISM
     Dosage: 25/100, 3 TABLETS DAILY
  14. CARBIDOPA AND LEVODOPA [Suspect]
     Active Substance: CARBIDOPA\LEVODOPA
     Dosage: 7-10 TABLETS DAILY (8 MG)

REACTIONS (14)
  - Drug ineffective [Recovered/Resolved]
  - Fear of falling [Unknown]
  - Abdominal discomfort [Recovered/Resolved]
  - Hallucination, auditory [Recovered/Resolved]
  - Chest pain [Recovered/Resolved]
  - Visual impairment [Unknown]
  - Urinary tract infection [Unknown]
  - Somnolence [Recovered/Resolved]
  - Delusion [Recovered/Resolved]
  - Tension [Unknown]
  - Treatment noncompliance [Unknown]
  - Memory impairment [Unknown]
  - Dysuria [Unknown]
  - Abdominal distension [Recovered/Resolved]
